FAERS Safety Report 9506091 (Version 1)
Quarter: 2013Q1

REPORT INFORMATION
  Report Type: Spontaneous
  Country: US (occurrence: None)
  Receive Date: 20130301
  Receipt Date: 20130301
  Transmission Date: 20140127
  Serious: Yes (Death)
  Sender: FDA-Public Use
  Company Number: RB-43681-2012

PATIENT
  Age: 33 Year
  Sex: Female

DRUGS (4)
  1. SUBOXONE [Suspect]
     Indication: DRUG DEPENDENCE
  2. LYRICA [Concomitant]
  3. INSULIN [Concomitant]
  4. XANAX [Concomitant]

REACTIONS (1)
  - Overdose [None]
